FAERS Safety Report 4973995-5 (Version None)
Quarter: 2006Q2

REPORT INFORMATION
  Report Type: 
  Country: None (occurrence: None)
  Receive Date: 20060417
  Receipt Date: 20060406
  Transmission Date: 20061013
  Serious: Yes (Hospitalization)
  Sender: FDA-Public Use
  Company Number: FR-BRISTOL-MYERS SQUIBB COMPANY-13339734

PATIENT
  Age: 82 Year
  Sex: Male
  Weight: 75 kg

DRUGS (11)
  1. TAXOL [Suspect]
     Indication: KAPOSI'S SARCOMA
     Route: 042
     Dates: start: 20060308, end: 20060308
  2. CORTANCYL [Concomitant]
     Indication: PREMEDICATION
  3. POLARAMINE [Concomitant]
     Indication: PREMEDICATION
  4. ZANTAC [Concomitant]
     Indication: PREMEDICATION
  5. LASILIX [Concomitant]
  6. PREVISCAN [Concomitant]
  7. CORDARONE [Concomitant]
  8. COVERSYL [Concomitant]
  9. OMIX [Concomitant]
  10. PROSCAR [Concomitant]
  11. KALEORID [Concomitant]

REACTIONS (2)
  - CONFUSIONAL STATE [None]
  - CONVULSION [None]
